FAERS Safety Report 8299262-2 (Version None)
Quarter: 2012Q2

REPORT INFORMATION
  Report Type: 
  Country: None (occurrence: None)
  Receive Date: 20120419
  Receipt Date: 20120409
  Transmission Date: 20120825
  Serious: Yes (Hospitalization)
  Sender: FDA-Public Use
  Company Number: US-JNJFOC-20110812861

PATIENT
  Sex: Female
  Weight: 35.7 kg

DRUGS (9)
  1. OXYCODONE HCL [Concomitant]
  2. HYDROCORTISONE [Concomitant]
  3. REMICADE [Suspect]
     Indication: INFLAMMATORY BOWEL DISEASE
     Route: 042
     Dates: start: 20070802, end: 20080709
  4. CIMZIA [Concomitant]
     Dates: start: 20100513
  5. CITALOPRAM [Concomitant]
  6. MAGNESIUM OXIDE [Concomitant]
  7. REMICADE [Suspect]
     Indication: CROHN'S DISEASE
     Route: 042
     Dates: start: 20070802, end: 20080709
  8. DOCUSATE SODIUM [Concomitant]
  9. FERROUS SULFATE TAB [Concomitant]

REACTIONS (1)
  - CROHN'S DISEASE [None]
